FAERS Safety Report 21995828 (Version 1)
Quarter: 2023Q1

REPORT INFORMATION
  Report Type: Report from Study
  Country: US (occurrence: None)
  Receive Date: 20230215
  Receipt Date: 20230215
  Transmission Date: 20230417
  Serious: Yes (Hospitalization)
  Sender: FDA-Public Use
  Company Number: 2023A033001

PATIENT
  Age: 84 Year
  Sex: Male
  Weight: 71.2 kg

DRUGS (13)
  1. CALQUENCE [Suspect]
     Active Substance: ACALABRUTINIB
     Indication: Mantle cell lymphoma
     Route: 048
     Dates: start: 20230131
  2. ACETAMINOPHEN [Concomitant]
     Active Substance: ACETAMINOPHEN
  3. AMLODIPINE\VALSARTAN [Concomitant]
     Active Substance: AMLODIPINE\VALSARTAN
  4. ATORVASTATIN [Concomitant]
     Active Substance: ATORVASTATIN
  5. CLOPIDOGREL [Concomitant]
     Active Substance: CLOPIDOGREL BISULFATE
  6. COLESTIPOL [Concomitant]
     Active Substance: COLESTIPOL
  7. FISH OIL [Concomitant]
     Active Substance: FISH OIL
  8. INDAPAMIDE [Concomitant]
     Active Substance: INDAPAMIDE
  9. METAMUCIL [Concomitant]
     Active Substance: PLANTAGO SEED
  10. METOLPROLOL [Concomitant]
  11. RASBURICASE [Concomitant]
     Active Substance: RASBURICASE
  12. NITROGLYCERIN [Concomitant]
     Active Substance: NITROGLYCERIN
  13. TAMSULOSIN [Concomitant]
     Active Substance: TAMSULOSIN

REACTIONS (3)
  - Blood potassium decreased [Recovering/Resolving]
  - Dehydration [Recovering/Resolving]
  - Diarrhoea [Unknown]

NARRATIVE: CASE EVENT DATE: 20230202
